FAERS Safety Report 7220037-7 (Version None)
Quarter: 2011Q1

REPORT INFORMATION
  Report Type: 
  Country: None (occurrence: None)
  Receive Date: 20110111
  Receipt Date: 20101222
  Transmission Date: 20110831
  Serious: Yes (Hospitalization, Congenital Anomaly)
  Sender: FDA-Public Use
  Company Number: A0687251A

PATIENT
  Sex: Male

DRUGS (4)
  1. PRENATAL VITAMINS [Concomitant]
     Indication: PREGNANCY
  2. PAXIL CR [Suspect]
     Indication: DEPRESSION
     Dosage: 37.5MG PER DAY
     Dates: start: 19980101, end: 20030101
  3. XANAX [Concomitant]
  4. PAXIL [Suspect]
     Indication: DEPRESSION
     Dosage: 20MG PER DAY
     Dates: start: 19980101, end: 20030101

REACTIONS (5)
  - MULTIPLE CONGENITAL ABNORMALITIES [None]
  - DRUG EXPOSURE DURING PREGNANCY [None]
  - ATRIAL SEPTAL DEFECT [None]
  - RESPIRATORY DISTRESS [None]
  - VENTRICULAR SEPTAL DEFECT [None]
